FAERS Safety Report 6588902-1 (Version None)
Quarter: 2010Q1

REPORT INFORMATION
  Report Type: 
  Country: None (occurrence: None)
  Receive Date: 20100218
  Receipt Date: 20100212
  Transmission Date: 20100710
  Serious: Yes (Hospitalization)
  Sender: FDA-Public Use
  Company Number: US-B.I. PHARMACEUTICALS,INC./RIDGEFIELD-2010-BP-00925BP

PATIENT
  Sex: Female

DRUGS (4)
  1. ZANTAC 150 [Suspect]
     Dosage: 1 ANZ
     Route: 048
     Dates: start: 20091201
  2. PLAVIX [Concomitant]
     Indication: CEREBROVASCULAR ACCIDENT
     Dosage: 75 MG
     Dates: start: 20040101
  3. LIPITOR [Concomitant]
     Dosage: 10 MG
  4. SYNTHROID [Concomitant]
     Dosage: 0.1 MG

REACTIONS (4)
  - ERYTHEMA [None]
  - INCOHERENT [None]
  - RASH ERYTHEMATOUS [None]
  - RASH GENERALISED [None]
